FAERS Safety Report 13042194 (Version 1)
Quarter: 2016Q4

REPORT INFORMATION
  Report Type: Report from Study
  Country: AU (occurrence: AU)
  Receive Date: 20161219
  Receipt Date: 20161219
  Transmission Date: 20170207
  Serious: Yes (Death, Other)
  Sender: FDA-Public Use
  Company Number: AU-GENTIUM-2016-AU-000693

PATIENT
  Sex: Female

DRUGS (3)
  1. DEFIBROTIDE (NPB) [Suspect]
     Active Substance: DEFIBROTIDE SODIUM
     Indication: VENOOCCLUSIVE LIVER DISEASE
     Dosage: UNK
     Dates: end: 2015
  2. DEFIBROTIDE (NPB) [Suspect]
     Active Substance: DEFIBROTIDE SODIUM
     Dosage: 60 MG/KG, QD
     Dates: start: 201511
  3. DEFIBROTIDE (NPB) [Suspect]
     Active Substance: DEFIBROTIDE SODIUM
     Dosage: 80 MG/KG, QD

REACTIONS (2)
  - Off label use [Unknown]
  - Death [Fatal]
